FAERS Safety Report 20185747 (Version 3)
Quarter: 2021Q4

REPORT INFORMATION
  Report Type: Report from Study
  Country: CA (occurrence: CA)
  Receive Date: 20211215
  Receipt Date: 20211227
  Transmission Date: 20220303
  Serious: No
  Sender: FDA-Public Use
  Company Number: CA-ABBVIE-21K-028-4181858-00

PATIENT
  Sex: Female

DRUGS (2)
  1. HUMIRA [Suspect]
     Active Substance: ADALIMUMAB
     Indication: Rheumatoid arthritis
     Route: 058
     Dates: start: 20100922
  2. HUMIRA [Suspect]
     Active Substance: ADALIMUMAB
     Indication: Rheumatoid arthritis
     Route: 058

REACTIONS (12)
  - Rheumatoid arthritis [Unknown]
  - Electric shock sensation [Unknown]
  - Intentional product misuse [Unknown]
  - Rotator cuff syndrome [Unknown]
  - Tendonitis [Unknown]
  - Dysstasia [Unknown]
  - Anger [Unknown]
  - Arthropathy [Unknown]
  - Urinary tract infection [Unknown]
  - Rheumatoid arthritis [Recovered/Resolved]
  - Injection site pain [Unknown]
  - Injection site bruising [Unknown]

NARRATIVE: CASE EVENT DATE: 20210101
